FAERS Safety Report 5726281-X (Version None)
Quarter: 2008Q2

REPORT INFORMATION
  Report Type: 
  Country: None (occurrence: None)
  Receive Date: 20080501
  Receipt Date: 20080501
  Transmission Date: 20081010
  Serious: Yes (Death)
  Sender: FDA-Public Use
  Company Number: None

PATIENT
  Age: 64 Year
  Sex: Male
  Weight: 73.5 kg

DRUGS (2)
  1. CLOFARABINE      GENZYME [Suspect]
     Indication: ACUTE MYELOID LEUKAEMIA
     Dosage: 40MG/M2/QDX5/IV
     Route: 042
     Dates: start: 20080319, end: 20080323
  2. MELPHALAN [Concomitant]

REACTIONS (16)
  - ARRHYTHMIA [None]
  - CARDIAC ARREST [None]
  - CARDIAC FAILURE CONGESTIVE [None]
  - CARDIAC FIBRILLATION [None]
  - CARDIAC FLUTTER [None]
  - ENTEROCOCCAL INFECTION [None]
  - GENITAL HERPES [None]
  - HYPOTENSION [None]
  - MUCOSAL INFLAMMATION [None]
  - MULTI-ORGAN FAILURE [None]
  - MYOCARDITIS [None]
  - NEUTROPENIA [None]
  - RENAL FAILURE [None]
  - SEPSIS [None]
  - STAPHYLOCOCCAL INFECTION [None]
  - TRANSAMINASES INCREASED [None]
